FAERS Safety Report 7470725-2 (Version None)
Quarter: 2011Q2

REPORT INFORMATION
  Report Type: 
  Country: None (occurrence: None)
  Receive Date: 20110506
  Receipt Date: 20110506
  Transmission Date: 20111010
  Serious: Yes (Other)
  Sender: FDA-Public Use
  Company Number: None

PATIENT
  Age: 36 Year
  Sex: Male
  Weight: 115.6672 kg

DRUGS (2)
  1. IMIQUIMOD [Suspect]
     Indication: MOLLUSCUM CONTAGIOSUM
  2. IMIQUIMOD [Suspect]
     Indication: ANOGENITAL WARTS

REACTIONS (9)
  - CHILLS [None]
  - HAEMORRHAGE [None]
  - ERYTHEMA [None]
  - GENITAL PAIN [None]
  - MYALGIA [None]
  - ILL-DEFINED DISORDER [None]
  - ASTHENIA [None]
  - SCAR [None]
  - INFLUENZA LIKE ILLNESS [None]
